FAERS Safety Report 8098533-2 (Version None)
Quarter: 2012Q1

REPORT INFORMATION
  Report Type: 
  Country: None (occurrence: None)
  Receive Date: 20120129
  Receipt Date: 20110906
  Transmission Date: 20120608
  Serious: No
  Sender: FDA-Public Use
  Company Number: US-ABBOTT-11P-163-0851834-00

PATIENT
  Sex: Female
  Weight: 72.64 kg

DRUGS (3)
  1. HUMIRA [Suspect]
     Indication: CROHN'S DISEASE
     Route: 058
     Dates: start: 20110101
  2. LEXAPRO [Concomitant]
     Indication: ANXIETY
  3. LEXAPRO [Concomitant]
     Indication: DEPRESSION

REACTIONS (3)
  - INCORRECT STORAGE OF DRUG [None]
  - DIARRHOEA [None]
  - INFLUENZA LIKE ILLNESS [None]
